FAERS Safety Report 25372791 (Version 1)
Quarter: 2025Q2

REPORT INFORMATION
  Report Type: Spontaneous
  Country: US (occurrence: US)
  Receive Date: 20250529
  Receipt Date: 20250529
  Transmission Date: 20250717
  Serious: Yes (Other)
  Sender: COLGATE
  Company Number: US-COLGATE PALMOLIVE COMPANY-20250500866

PATIENT
  Sex: Male

DRUGS (1)
  1. COLGATE TOTAL WHITENING CHARCOAL [Suspect]
     Active Substance: STANNOUS FLUORIDE
     Dates: start: 202409

REACTIONS (2)
  - Dental caries [Not Recovered/Not Resolved]
  - Noninfective gingivitis [Not Recovered/Not Resolved]
